FAERS Safety Report 9800870 (Version 2)
Quarter: 2014Q1

REPORT INFORMATION
  Report Type: Spontaneous
  Country: US (occurrence: US)
  Receive Date: 20140107
  Receipt Date: 20140107
  Transmission Date: 20141002
  Serious: Yes (Other)
  Sender: FDA-Public Use
  Company Number: US-GE HEALTHCARE MEDICAL DIAGNOSTICS-OSCN-PR-1106S-0151

PATIENT
  Age: 55 Year
  Sex: Female

DRUGS (3)
  1. OMNISCAN [Suspect]
     Indication: MENTAL STATUS CHANGES
     Dates: start: 20070822, end: 20070822
  2. GADOLINIUM (UNSPECIFIED) [Suspect]
     Indication: PRODUCT USED FOR UNKNOWN INDICATION
     Dates: start: 19980110, end: 19980110
  3. GADOLINIUM (UNSPECIFIED) [Suspect]
     Indication: PRODUCT USED FOR UNKNOWN INDICATION
     Dates: start: 20060503, end: 20060503

REACTIONS (1)
  - Nephrogenic systemic fibrosis [Not Recovered/Not Resolved]
